FAERS Safety Report 21940936 (Version 1)
Quarter: 2023Q1

REPORT INFORMATION
  Report Type: Report from Study
  Country: US (occurrence: US)
  Receive Date: 20230202
  Receipt Date: 20230202
  Transmission Date: 20230418
  Serious: No
  Sender: FDA-Public Use
  Company Number: US-EXELIXIS-CABO-22053021

PATIENT
  Sex: Male

DRUGS (7)
  1. COMETRIQ [Suspect]
     Active Substance: CABOZANTINIB S-MALATE
     Indication: Cardiac neoplasm malignant
     Dosage: 140 MG (1 TABLET 80 MG AND 3 TABLET 20 MG), QD
     Route: 048
     Dates: start: 20220525, end: 202206
  2. COMETRIQ [Suspect]
     Active Substance: CABOZANTINIB S-MALATE
     Indication: Paraganglion neoplasm malignant
     Dosage: 100 MG BID (1 TABLET 80 MG IN AM AND 1 TABLET 20 MG IN PM)
     Route: 048
     Dates: start: 202206
  3. ELIQUIS [Concomitant]
     Active Substance: APIXABAN
     Dosage: UNK
  4. FAMOTIDINE [Concomitant]
     Active Substance: FAMOTIDINE
     Dosage: UNK
  5. ATENOLOL [Concomitant]
     Active Substance: ATENOLOL
     Dosage: UNK
  6. DOXAZOSIN [Concomitant]
     Active Substance: DOXAZOSIN MESYLATE
     Dosage: UNK
  7. ROSUVASTATIN [Concomitant]
     Active Substance: ROSUVASTATIN
     Dosage: UNK

REACTIONS (9)
  - Eating disorder [Recovering/Resolving]
  - Depression [Recovering/Resolving]
  - Ear pain [Recovering/Resolving]
  - Vision blurred [Recovering/Resolving]
  - Diarrhoea [Recovering/Resolving]
  - Nausea [Recovering/Resolving]
  - Fatigue [Recovering/Resolving]
  - Inappropriate schedule of product administration [Unknown]
  - Off label use [Unknown]
